FAERS Safety Report 7680263-X (Version None)
Quarter: 2011Q3

REPORT INFORMATION
  Report Type: 
  Country: None (occurrence: None)
  Receive Date: 20110812
  Receipt Date: 20110801
  Transmission Date: 20111222
  Serious: Yes (Other)
  Sender: FDA-Public Use
  Company Number: FR-SANOFI-AVENTIS-2011SA048933

PATIENT
  Sex: Female

DRUGS (2)
  1. MYOCARDIAL THERAPY [Concomitant]
     Route: 065
  2. LANTUS [Suspect]
     Route: 051
     Dates: start: 20100101

REACTIONS (4)
  - PERIPHERAL VASCULAR DISORDER [None]
  - WEIGHT INCREASED [None]
  - SKIN PLAQUE [None]
  - PHLEBITIS [None]
